FAERS Safety Report 8095382-6 (Version None)
Quarter: 2012Q1

REPORT INFORMATION
  Report Type: 
  Country: None (occurrence: None)
  Receive Date: 20120125
  Receipt Date: 20120111
  Transmission Date: 20120608
  Serious: Yes (Death, Hospitalization, Other)
  Sender: FDA-Public Use
  Company Number: 2012MA000486

PATIENT
  Sex: Female
  Weight: 49.8957 kg

DRUGS (11)
  1. DIGOXIN [Suspect]
     Indication: PRODUCT USED FOR UNKNOWN INDICATION
     Dosage: 0.25 MG;QD;PO
     Route: 048
     Dates: end: 20080514
  2. PROTONIX [Concomitant]
  3. DUONEB [Concomitant]
  4. POTASSIUM [Concomitant]
  5. PRILOSEC [Concomitant]
  6. ASPIRIN [Concomitant]
  7. IRON [Concomitant]
  8. CALCIUM [Concomitant]
  9. M.V.I. [Concomitant]
  10. PROCRIT [Concomitant]
  11. LASIX [Concomitant]

REACTIONS (61)
  - ASTHENIA [None]
  - OEDEMA PERIPHERAL [None]
  - HYPERKALAEMIA [None]
  - HYPOTENSION [None]
  - DRY MOUTH [None]
  - TOXICITY TO VARIOUS AGENTS [None]
  - HEART RATE DECREASED [None]
  - AORTIC STENOSIS [None]
  - HYPOPHAGIA [None]
  - NAUSEA [None]
  - FATIGUE [None]
  - DIZZINESS [None]
  - CHEYNE-STOKES RESPIRATION [None]
  - HEART RATE IRREGULAR [None]
  - NODAL ARRHYTHMIA [None]
  - SINUS ARREST [None]
  - TRICUSPID VALVE INCOMPETENCE [None]
  - DECREASED APPETITE [None]
  - BRADYCARDIA [None]
  - DYSPNOEA [None]
  - LUNG INFILTRATION [None]
  - ACTIVITIES OF DAILY LIVING IMPAIRED [None]
  - CARDIAC FAILURE CONGESTIVE [None]
  - DYSPNOEA EXERTIONAL [None]
  - MACROCYTOSIS [None]
  - TACHYCARDIA [None]
  - COUGH [None]
  - MALNUTRITION [None]
  - EXTRASYSTOLES [None]
  - RENAL FAILURE ACUTE [None]
  - AZOTAEMIA [None]
  - MOBILITY DECREASED [None]
  - CARDIOMYOPATHY [None]
  - CARDIOMEGALY [None]
  - CARDIO-RESPIRATORY ARREST [None]
  - CARDIAC MURMUR [None]
  - MUSCLE ATROPHY [None]
  - CARDIOACTIVE DRUG LEVEL INCREASED [None]
  - CREPITATIONS [None]
  - ATRIAL FIBRILLATION [None]
  - QRS AXIS ABNORMAL [None]
  - LEFT VENTRICULAR HYPERTROPHY [None]
  - MITRAL VALVE INCOMPETENCE [None]
  - SUPRAVENTRICULAR EXTRASYSTOLES [None]
  - ELECTROCARDIOGRAM QT SHORTENED [None]
  - LETHARGY [None]
  - GAIT DISTURBANCE [None]
  - PLEURAL EFFUSION [None]
  - ELECTROCARDIOGRAM QRS COMPLEX SHORTENED [None]
  - ANAEMIA [None]
  - HAEMATOCHEZIA [None]
  - ELECTROCARDIOGRAM QT PROLONGED [None]
  - BALANCE DISORDER [None]
  - OCCULT BLOOD POSITIVE [None]
  - CACHEXIA [None]
  - VENTRICULAR EXTRASYSTOLES [None]
  - OEDEMA [None]
  - MYOCARDIAL INFARCTION [None]
  - PULMONARY VALVE INCOMPETENCE [None]
  - PARAESTHESIA [None]
  - KYPHOSIS [None]
